FAERS Safety Report 5290822-X (Version None)
Quarter: 2007Q2

REPORT INFORMATION
  Report Type: 
  Country: None (occurrence: None)
  Receive Date: 20070409
  Receipt Date: 20070326
  Transmission Date: 20071010
  Serious: Yes (Other)
  Sender: FDA-Public Use
  Company Number: US-PFIZER INC-2007025310

PATIENT
  Sex: Female
  Weight: 77.1 kg

DRUGS (8)
  1. NEURONTIN [Suspect]
     Indication: HEAD INJURY
     Dosage: DAILY DOSE:2400MG
  2. LYRICA [Suspect]
     Indication: POST PROCEDURAL COMPLICATION
  3. LAMICTAL [Concomitant]
  4. AMITRIPTYLINE HCL [Concomitant]
  5. RELAFEN [Concomitant]
  6. OXYCONTIN [Concomitant]
  7. VISINE EYE DROPS [Concomitant]
  8. ALBUTEROL [Concomitant]

REACTIONS (5)
  - DEPRESSED MOOD [None]
  - ELECTROCARDIOGRAM ABNORMAL [None]
  - HYPERTENSION [None]
  - VISION BLURRED [None]
  - WEIGHT INCREASED [None]
